FAERS Safety Report 15628549 (Version 1)
Quarter: 2018Q4

REPORT INFORMATION
  Report Type: Spontaneous
  Country: PL (occurrence: PL)
  Receive Date: 20181116
  Receipt Date: 20181116
  Transmission Date: 20190205
  Serious: Yes (Hospitalization, Other)
  Sender: FDA-Public Use
  Company Number: PL-UNITED THERAPEUTICS-UNT-2018-018544

PATIENT

DRUGS (4)
  1. REMODULIN [Suspect]
     Active Substance: TREPROSTINIL
     Indication: PULMONARY VENO-OCCLUSIVE DISEASE
     Dosage: 0.01325 ?G/KG, CONTINUING
     Route: 058
     Dates: start: 201606
  2. BOSENTAN. [Concomitant]
     Active Substance: BOSENTAN
     Indication: PRODUCT USED FOR UNKNOWN INDICATION
     Dosage: 125 MG, BID
     Route: 065
  3. REMODULIN [Suspect]
     Active Substance: TREPROSTINIL
     Dosage: 0.0263 ?G/KG CONTINUING
     Route: 058
     Dates: start: 201702
  4. REMODULIN [Suspect]
     Active Substance: TREPROSTINIL
     Dosage: 0.0744 ?G/KG CONTINUING
     Route: 058
     Dates: start: 201704

REACTIONS (13)
  - Multiple organ dysfunction syndrome [Recovering/Resolving]
  - Syncope [Recovering/Resolving]
  - Cytomegalovirus infection [Recovering/Resolving]
  - Respiratory failure [Recovered/Resolved]
  - Product use in unapproved indication [Unknown]
  - Dyspnoea exertional [Recovering/Resolving]
  - Fungal infection [Recovering/Resolving]
  - Hepatomegaly [Recovering/Resolving]
  - Circulatory collapse [Recovering/Resolving]
  - Hypotension [Recovering/Resolving]
  - Hypoperfusion [Recovering/Resolving]
  - Right ventricular failure [Recovered/Resolved]
  - Oedema peripheral [Recovering/Resolving]

NARRATIVE: CASE EVENT DATE: 201606
